FAERS Safety Report 25431721 (Version 2)
Quarter: 2025Q2

REPORT INFORMATION
  Report Type: Spontaneous
  Country: US (occurrence: US)
  Receive Date: 20250613
  Receipt Date: 20250626
  Transmission Date: 20250717
  Serious: Yes (Other)
  Sender: STAQ PHARMA - No Location Specified
  Company Number: US-STAQ Pharma, Inc-2178554

PATIENT

DRUGS (1)
  1. KETAMINE HYDROCHLORIDE [Suspect]
     Active Substance: KETAMINE HYDROCHLORIDE

REACTIONS (1)
  - Chills [Unknown]
